FAERS Safety Report 20061723 (Version 2)
Quarter: 2021Q4

REPORT INFORMATION
  Report Type: Spontaneous
  Country: US (occurrence: US)
  Receive Date: 20211112
  Receipt Date: 20211117
  Transmission Date: 20220304
  Serious: No
  Sender: FDA-Public Use
  Company Number: US-BAYER-2021A247756

PATIENT
  Age: 21 Year
  Sex: Female
  Weight: 63.946 kg

DRUGS (3)
  1. KYLEENA [Suspect]
     Active Substance: LEVONORGESTREL
     Indication: Intra-uterine contraceptive device insertion
     Dosage: 17.5?G/DAY
     Route: 015
     Dates: start: 20210513, end: 20211104
  2. WELLBUTRIN [Concomitant]
     Active Substance: BUPROPION HYDROCHLORIDE
  3. ANAPROX [Concomitant]
     Active Substance: NAPROXEN SODIUM
     Dosage: 550 MG, QD
     Route: 048

REACTIONS (5)
  - Device expulsion [Recovered/Resolved]
  - Vaginal haemorrhage [None]
  - Pelvic pain [None]
  - Abdominal pain lower [None]
  - Dyspareunia [None]

NARRATIVE: CASE EVENT DATE: 20210101
